FAERS Safety Report 5656876-3 (Version None)
Quarter: 2008Q1

REPORT INFORMATION
  Report Type: 
  Country: None (occurrence: None)
  Receive Date: 20080306
  Receipt Date: 20080306
  Transmission Date: 20080703
  Serious: Yes (Hospitalization)
  Sender: FDA-Public Use
  Company Number: None

PATIENT
  Sex: Male
  Weight: 81.6475 kg

DRUGS (3)
  1. GABAPENTIN [Suspect]
     Indication: LUMBAR SPINAL STENOSIS
     Dosage: ONCE PO TID
     Route: 048
     Dates: start: 20080219
  2. GABAPENTIN [Suspect]
     Indication: TYPE 2 DIABETES MELLITUS
     Dosage: ONCE PO TID
     Route: 048
     Dates: start: 20080219
  3. FLEXERIL [Concomitant]

REACTIONS (1)
  - STEVENS-JOHNSON SYNDROME [None]
